FAERS Safety Report 21904364 (Version 1)
Quarter: 2023Q1

REPORT INFORMATION
  Report Type: Spontaneous
  Country: US (occurrence: US)
  Receive Date: 20230124
  Receipt Date: 20230124
  Transmission Date: 20230418
  Serious: No
  Sender: FDA-Public Use
  Company Number: US-AMGEN-USASP2023004376

PATIENT
  Sex: Female

DRUGS (1)
  1. PROLIA [Suspect]
     Active Substance: DENOSUMAB
     Indication: Product used for unknown indication
     Route: 065

REACTIONS (6)
  - Rash [Unknown]
  - Abdominal pain upper [Unknown]
  - Abdominal distension [Unknown]
  - Oesophageal pain [Unknown]
  - Back pain [Unknown]
  - Balance disorder [Unknown]
